FAERS Safety Report 5309755-5 (Version None)
Quarter: 2007Q2

REPORT INFORMATION
  Report Type: 
  Country: None (occurrence: None)
  Receive Date: 20070427
  Receipt Date: 20061117
  Transmission Date: 20071010
  Serious: No
  Sender: FDA-Public Use
  Company Number: US-GLAXOSMITHKLINE-A0622643A

PATIENT
  Age: 58 Year
  Sex: Female
  Weight: 52.3 kg

DRUGS (4)
  1. ZOFRAN [Suspect]
     Indication: PROPHYLAXIS OF NAUSEA AND VOMITING
     Dosage: 8MG VARIABLE DOSE
     Route: 048
     Dates: start: 20061003, end: 20061003
  2. DECADRON [Concomitant]
  3. LORAZEPAM [Concomitant]
  4. EMEND [Concomitant]

REACTIONS (8)
  - ABDOMINAL PAIN UPPER [None]
  - ASTHENIA [None]
  - DIARRHOEA [None]
  - DIZZINESS [None]
  - FATIGUE [None]
  - HEADACHE [None]
  - MIGRAINE [None]
  - VOMITING [None]
